FAERS Safety Report 11551902 (Version 1)
Quarter: 2015Q3

REPORT INFORMATION
  Report Type: Spontaneous
  Country: US (occurrence: US)
  Receive Date: 20150903
  Receipt Date: 20150903
  Transmission Date: 20151125
  Serious: No
  Sender: FDA-Public Use
  Company Number: US-ELI_LILLY_AND_COMPANY-US201005006747

PATIENT
  Age: 82 Year
  Sex: Male

DRUGS (6)
  1. HUMALOG [Suspect]
     Active Substance: INSULIN LISPRO
     Dosage: 5 U, OTHER
  2. HUMALOG [Suspect]
     Active Substance: INSULIN LISPRO
     Dosage: 6 U, EACH EVENING
  3. HUMALOG [Suspect]
     Active Substance: INSULIN LISPRO
     Dosage: 5 U, OTHER
  4. HUMALOG [Suspect]
     Active Substance: INSULIN LISPRO
     Indication: DIABETES MELLITUS
     Dosage: 5 U, EACH MORNING
  5. HUMALOG [Suspect]
     Active Substance: INSULIN LISPRO
     Dosage: 5 U, EACH MORNING
  6. HUMALOG [Suspect]
     Active Substance: INSULIN LISPRO
     Dosage: 6 U, EACH EVENING

REACTIONS (3)
  - Blood glucose increased [Not Recovered/Not Resolved]
  - Hearing impaired [Not Recovered/Not Resolved]
  - Tinnitus [Unknown]

NARRATIVE: CASE EVENT DATE: 20100517
